FAERS Safety Report 14398593 (Version 1)
Quarter: 2018Q1

REPORT INFORMATION
  Report Type: Report from Study
  Country: MX (occurrence: MX)
  Receive Date: 20180117
  Receipt Date: 20180117
  Transmission Date: 20180509
  Serious: Yes (Hospitalization)
  Sender: FDA-Public Use
  Company Number: MX-BRISTOL-MYERS SQUIBB COMPANY-BMS-2018-003522

PATIENT
  Age: 33 Year
  Sex: Female

DRUGS (1)
  1. DASATINIB. [Suspect]
     Active Substance: DASATINIB
     Indication: ACUTE LYMPHOCYTIC LEUKAEMIA
     Dosage: 100 MG, QD
     Route: 048
     Dates: start: 20171101

REACTIONS (6)
  - Dizziness [Unknown]
  - Headache [Unknown]
  - Diplopia [Unknown]
  - Prescribed underdose [Unknown]
  - Muscular weakness [Unknown]
  - Movement disorder [Unknown]

NARRATIVE: CASE EVENT DATE: 20180108
